FAERS Safety Report 7963738-5 (Version None)
Quarter: 2011Q4

REPORT INFORMATION
  Report Type: 
  Country: None (occurrence: None)
  Receive Date: 20111208
  Receipt Date: 20111128
  Transmission Date: 20120403
  Serious: Yes (Other)
  Sender: FDA-Public Use
  Company Number: ZA-JNJFOC-20111111527

PATIENT
  Sex: Female

DRUGS (2)
  1. CORTISONE ACETATE [Concomitant]
     Route: 065
  2. REVELLEX [Suspect]
     Indication: JUVENILE ARTHRITIS
     Route: 042

REACTIONS (5)
  - HERPES VIRUS INFECTION [None]
  - OESOPHAGEAL CANDIDIASIS [None]
  - SOMNOLENCE [None]
  - FATIGUE [None]
  - PAIN [None]
